FAERS Safety Report 7153565-3 (Version None)
Quarter: 2010Q4

REPORT INFORMATION
  Report Type: 
  Country: None (occurrence: None)
  Receive Date: 20101213
  Receipt Date: 20101208
  Transmission Date: 20110411
  Serious: Yes (Death, Hospitalization, Other)
  Sender: FDA-Public Use
  Company Number: PHHY2010JP78216

PATIENT
  Sex: Male
  Weight: 60 kg

DRUGS (7)
  1. DIOVAN [Suspect]
     Indication: HYPERTENSION
     Dosage: 40 MG ONCE DAILY
     Route: 048
     Dates: start: 20090122, end: 20100114
  2. CARVEDILOL [Concomitant]
     Indication: HYPERTENSION
     Dosage: 10MG
     Route: 048
     Dates: start: 20071030, end: 20100114
  3. ASPIRIN [Concomitant]
     Dosage: 100MG
     Route: 048
     Dates: start: 20040105, end: 20100114
  4. MUCOSTA [Concomitant]
     Dosage: 200MG
     Route: 048
     Dates: start: 20091030, end: 20100114
  5. MAGLAX [Concomitant]
     Dosage: 990 MG
     Route: 048
     Dates: start: 20090122, end: 20100114
  6. CRESTOR [Concomitant]
     Dosage: 2.5MG
     Route: 048
     Dates: start: 20070906, end: 20100113
  7. EPADEL [Concomitant]
     Dosage: 1800MG
     Route: 048
     Dates: start: 20080324, end: 20100114

REACTIONS (7)
  - BRAIN CONTUSION [None]
  - CARDIO-RESPIRATORY ARREST [None]
  - COMA [None]
  - FALL [None]
  - HAEMORRHAGE [None]
  - MYOCARDIAL INFARCTION [None]
  - SWELLING [None]
